FAERS Safety Report 8096070-2 (Version None)
Quarter: 2012Q1

REPORT INFORMATION
  Report Type: 
  Country: None (occurrence: None)
  Receive Date: 20120129
  Receipt Date: 20111214
  Transmission Date: 20120608
  Serious: No
  Sender: FDA-Public Use
  Company Number: US-ABBOTT-11P-163-0883833-00

PATIENT
  Sex: Female

DRUGS (3)
  1. HUMIRA [Suspect]
     Indication: PSORIASIS
     Dates: start: 20110801
  2. SYNTHROID [Concomitant]
     Indication: HYPOTHYROIDISM
  3. IBUPROFEN [Concomitant]
     Indication: ARTHRITIS

REACTIONS (2)
  - CONTUSION [None]
  - INJECTION SITE HAEMATOMA [None]
